FAERS Safety Report 10188212 (Version 2)
Quarter: 2014Q2

REPORT INFORMATION
  Report Type: Spontaneous
  Country: IT (occurrence: None)
  Receive Date: 20140520
  Receipt Date: 20140523
  Transmission Date: 20141212
  Serious: Yes (Other)
  Sender: FDA-Public Use
  Company Number: AUR-APL-2014-05743

PATIENT
  Age: 39 Year
  Sex: Female

DRUGS (2)
  1. CEFTRIAXONE [Suspect]
     Indication: BRONCHITIS
     Dosage: (1 GM, TOTAL), INTRAMACULAR
     Route: 030
     Dates: start: 20140502, end: 20140502
  2. PANTORC (PANTOPRAZOLE SODIUM SESQUIHYDRATE) [Concomitant]

REACTIONS (4)
  - Malaise [None]
  - Vomiting [None]
  - Generalised erythema [None]
  - Pruritus generalised [None]
